FAERS Safety Report 11930385 (Version 3)
Quarter: 2016Q3

REPORT INFORMATION
  Report Type: Spontaneous
  Country: US (occurrence: US)
  Receive Date: 20160120
  Receipt Date: 20160901
  Transmission Date: 20161109
  Serious: No
  Sender: FDA-Public Use
  Company Number: PHEH2016US001233

PATIENT
  Sex: Female

DRUGS (2)
  1. ESCITALOPRAM [Concomitant]
     Active Substance: ESCITALOPRAM OXALATE
     Indication: PRODUCT USED FOR UNKNOWN INDICATION
     Route: 065
  2. PROMACTA [Suspect]
     Active Substance: ELTROMBOPAG OLAMINE
     Indication: PRODUCT USED FOR UNKNOWN INDICATION
     Dosage: 25 MG, (ONE IN EVERY THIRD DAY)
     Route: 065

REACTIONS (7)
  - Headache [Unknown]
  - Myalgia [Unknown]
  - Erythema [Unknown]
  - Contusion [Unknown]
  - Temperature intolerance [Unknown]
  - Arthralgia [Unknown]
  - Pruritus [Unknown]
